FAERS Safety Report 21346088 (Version 2)
Quarter: 2022Q4

REPORT INFORMATION
  Report Type: Spontaneous
  Country: CA (occurrence: CA)
  Receive Date: 20220917
  Receipt Date: 20221026
  Transmission Date: 20230112
  Serious: Yes (Other)
  Sender: FDA-Public Use
  Company Number: CA-CELLTRION INC.-2022CA007066

PATIENT

DRUGS (6)
  1. INFLECTRA [Suspect]
     Active Substance: INFLIXIMAB-DYYB
     Indication: Crohn^s disease
     Dosage: 300 MG OR 5MG/KG AT 0, 2, 6 WEEK THEN VERY 8 WEEKS NOT STARTED YET
     Route: 042
  2. INFLECTRA [Suspect]
     Active Substance: INFLIXIMAB-DYYB
     Dosage: 300 MG, OR 5MG/KG AT 0, 2, 6 WEEK THEN VERY 8 WEEKS
     Route: 042
     Dates: start: 20220331, end: 20220711
  3. INFLECTRA [Suspect]
     Active Substance: INFLIXIMAB-DYYB
     Dosage: 300 MG, OR 5MG/KG AT 0, 2, 6 WEEK THEN VERY 8 WEEKS
     Route: 042
     Dates: start: 20220413
  4. CIPRO [Concomitant]
     Active Substance: CIPROFLOXACIN HYDROCHLORIDE
     Dosage: 1 DF FREQUENCY: UNKNOWN
     Route: 065
     Dates: start: 20220321
  5. SULFASALAZINE [Concomitant]
     Active Substance: SULFASALAZINE
     Dosage: 1 DF
  6. TYLENOL EXTRA STRENGTH [Concomitant]
     Active Substance: ACETAMINOPHEN
     Dosage: UNKNOWN

REACTIONS (2)
  - Drug reaction with eosinophilia and systemic symptoms [Unknown]
  - Heart rate decreased [Not Recovered/Not Resolved]

NARRATIVE: CASE EVENT DATE: 20220101
